FAERS Safety Report 5416817-0 (Version None)
Quarter: 2007Q3

REPORT INFORMATION
  Report Type: 
  Country: None (occurrence: None)
  Receive Date: 20070718
  Receipt Date: 20061011
  Transmission Date: 20080115
  Serious: Yes (Hospitalization)
  Sender: FDA-Public Use
  Company Number: 2006053942

PATIENT
  Age: 68 Year
  Sex: Male
  Weight: 81.6475 kg

DRUGS (1)
  1. CELEBREX [Suspect]
     Indication: ARTHRITIS
     Dosage: 100 MG (100 MG, 1 IN 1D)
     Dates: start: 20010101

REACTIONS (1)
  - MYOCARDIAL INFARCTION [None]
